FAERS Safety Report 13138480 (Version 2)
Quarter: 2017Q1

REPORT INFORMATION
  Report Type: Report from Study
  Country: US (occurrence: US)
  Receive Date: 20170123
  Receipt Date: 20170127
  Transmission Date: 20170428
  Serious: Yes (Other)
  Sender: FDA-Public Use
  Company Number: US-SUN PHARMACEUTICAL INDUSTRIES LTD-2016US-127688

PATIENT
  Sex: Female

DRUGS (6)
  1. METAIODOBENZYLGUANIDINE [Concomitant]
     Active Substance: IOBENGUANE I-131
     Indication: GANGLIONEUROBLASTOMA
     Route: 065
  2. ETOPOSIDE. [Concomitant]
     Active Substance: ETOPOSIDE
     Indication: GANGLIONEUROBLASTOMA
     Route: 065
  3. ISOTRETINOIN [Suspect]
     Active Substance: ISOTRETINOIN
     Indication: GANGLIONEUROBLASTOMA
     Dosage: SIX COURSES 13,440 MG/M2
     Route: 065
  4. FENRETINIDE [Suspect]
     Active Substance: FENRETINIDE
     Indication: GANGLIONEUROBLASTOMA
     Dosage: 800 MG, TID
     Route: 048
  5. MELPHALAN [Concomitant]
     Active Substance: MELPHALAN
     Indication: GANGLIONEUROBLASTOMA
     Route: 065
  6. CARBOPLATIN. [Concomitant]
     Active Substance: CARBOPLATIN
     Indication: GANGLIONEUROBLASTOMA
     Route: 065

REACTIONS (2)
  - Epiphyses premature fusion [Recovered/Resolved]
  - Ovarian disorder [Recovered/Resolved]
